FAERS Safety Report 18956457 (Version 1)
Quarter: 2021Q1

REPORT INFORMATION
  Report Type: Spontaneous
  Country: LT (occurrence: LT)
  Receive Date: 20210302
  Receipt Date: 20210302
  Transmission Date: 20210420
  Serious: Yes (Hospitalization, Other)
  Sender: FDA-Public Use
  Company Number: LT-SUN PHARMACEUTICAL INDUSTRIES LTD-2021R1-282996

PATIENT
  Sex: Male
  Weight: 3.61 kg

DRUGS (8)
  1. DEXAMETHASONE. [Suspect]
     Active Substance: DEXAMETHASONE
     Indication: LUNG DISORDER
     Dosage: 12 MILLIGRAM
     Route: 064
  2. PROPAFENONE. [Suspect]
     Active Substance: PROPAFENONE
     Indication: FOETAL ARRHYTHMIA
     Dosage: 150 MILLIGRAM
     Route: 064
  3. SOTALOL. [Suspect]
     Active Substance: SOTALOL
     Indication: FOETAL TACHYARRHYTHMIA
     Dosage: 80 MILLIGRAM(EVERY 8 HR)
     Route: 064
  4. DIGOXIN. [Suspect]
     Active Substance: DIGOXIN
     Dosage: 0.25 MILLIGRAM(REPEATED AFTER 2.5 H)
     Route: 064
  5. METOPROLOL. [Suspect]
     Active Substance: METOPROLOL
     Indication: FOETAL ARRHYTHMIA
     Dosage: 20 MILLIGRAM
     Route: 064
  6. PROPAFENONE. [Suspect]
     Active Substance: PROPAFENONE
     Indication: FOETAL HEART RATE ABNORMAL
     Dosage: 140 MILLIGRAM
     Route: 064
  7. DIGOXIN. [Suspect]
     Active Substance: DIGOXIN
     Indication: PRODUCT USED FOR UNKNOWN INDICATION
     Dosage: 0.25 MILLIGRAM
     Route: 064
  8. DIGOXIN. [Suspect]
     Active Substance: DIGOXIN
     Indication: FOETAL ARRHYTHMIA
     Dosage: 0.25 MILLIGRAM, DAILY
     Route: 064

REACTIONS (4)
  - Foetal exposure during pregnancy [Unknown]
  - Supraventricular tachycardia [Recovered/Resolved]
  - Drug ineffective [Unknown]
  - Wolff-Parkinson-White syndrome [Recovered/Resolved]
